FAERS Safety Report 17866484 (Version 1)
Quarter: 2020Q2

REPORT INFORMATION
  Report Type: Spontaneous
  Country: US (occurrence: US)
  Receive Date: 20200605
  Receipt Date: 20200605
  Transmission Date: 20200714
  Serious: Yes (Other)
  Sender: FDA-Public Use
  Company Number: US-BAYER-2020-103973

PATIENT
  Sex: Male

DRUGS (1)
  1. ASPIRIN (PAIN AND FEVER) [Suspect]
     Active Substance: ASPIRIN
     Indication: INTENTIONAL SELF-INJURY
     Dosage: UNK
     Route: 065

REACTIONS (3)
  - Intentional self-injury [Unknown]
  - Disorientation [Unknown]
  - Intentional overdose [Unknown]
